FAERS Safety Report 7964923-9 (Version None)
Quarter: 2011Q4

REPORT INFORMATION
  Report Type: 
  Country: None (occurrence: None)
  Receive Date: 20111208
  Receipt Date: 20111208
  Transmission Date: 20120403
  Serious: No
  Sender: FDA-Public Use
  Company Number: None

PATIENT
  Age: 59 Year
  Sex: Female
  Weight: 69.853 kg

DRUGS (3)
  1. PREDNISONE [Suspect]
     Indication: EYE SWELLING
     Dosage: 10 MG
     Route: 002
     Dates: start: 20111030, end: 20111108
  2. PREDNISONE [Suspect]
     Indication: MULTIPLE ALLERGIES
     Dosage: 10 MG
     Route: 002
     Dates: start: 20111030, end: 20111108
  3. PREDNISONE [Suspect]
     Indication: EYE PRURITUS
     Dosage: 10 MG
     Route: 002
     Dates: start: 20111030, end: 20111108

REACTIONS (1)
  - URTICARIA [None]
